FAERS Safety Report 13870622 (Version 1)
Quarter: 2017Q3

REPORT INFORMATION
  Report Type: Spontaneous
  Country: US (occurrence: US)
  Receive Date: 20170816
  Receipt Date: 20170816
  Transmission Date: 20171127
  Serious: Yes (Hospitalization, Other)
  Sender: FDA-Public Use
  Company Number: US-BAXTER-2017BAX029774

PATIENT
  Age: 20 Year
  Sex: Female
  Weight: 47 kg

DRUGS (36)
  1. VINCRISTINE [Suspect]
     Active Substance: VINCRISTINE
     Indication: B PRECURSOR TYPE ACUTE LEUKAEMIA
     Dosage: INTENSIFICATION 2
     Route: 065
  2. DEXAMETHASONE. [Suspect]
     Active Substance: DEXAMETHASONE
     Indication: ADVERSE EVENT
     Route: 065
     Dates: start: 20160504
  3. ARA-C [Suspect]
     Active Substance: CYTARABINE
     Route: 037
     Dates: end: 20170622
  4. DILANTIN [Suspect]
     Active Substance: PHENYTOIN
     Indication: PRODUCT USED FOR UNKNOWN INDICATION
     Route: 065
  5. DECADRON [Suspect]
     Active Substance: DEXAMETHASONE
     Indication: RECURRENT CANCER
     Route: 065
     Dates: start: 20160408
  6. VINCRISTINE [Suspect]
     Active Substance: VINCRISTINE
     Route: 065
     Dates: end: 20141205
  7. FLUDARABINE [Suspect]
     Active Substance: FLUDARABINE PHOSPHATE
     Indication: ACUTE LYMPHOCYTIC LEUKAEMIA RECURRENT
     Route: 065
     Dates: start: 20160921, end: 20160923
  8. BLINCYTO [Suspect]
     Active Substance: BLINATUMOMAB
     Route: 065
     Dates: start: 20170706
  9. METHOTREXATE. [Suspect]
     Active Substance: METHOTREXATE
     Indication: RECURRENT CANCER
     Dosage: CONDITIONING REGIMEN
     Route: 065
     Dates: start: 20151016
  10. DEXAMETHASONE. [Suspect]
     Active Substance: DEXAMETHASONE
     Indication: B PRECURSOR TYPE ACUTE LEUKAEMIA
     Dosage: INTENSIFICATION 2
     Route: 065
  11. ARA-C [Suspect]
     Active Substance: CYTARABINE
     Indication: RECURRENT CANCER
     Dosage: CHEMOTHERAPY
     Route: 037
  12. ARA-C [Suspect]
     Active Substance: CYTARABINE
     Indication: METASTASES TO CENTRAL NERVOUS SYSTEM
     Dosage: DOSE INCREASED FROM 50MG TO 75MG
     Route: 037
  13. BLINCYTO [Suspect]
     Active Substance: BLINATUMOMAB
     Indication: ACUTE LYMPHOCYTIC LEUKAEMIA RECURRENT
     Route: 065
     Dates: start: 20170410, end: 20170413
  14. PREDNISONE. [Suspect]
     Active Substance: PREDNISONE
     Indication: ADVERSE EVENT
     Route: 065
     Dates: start: 20160503
  15. CYCLOPHOSPHAMIDE FOR INJECTION, USP [Suspect]
     Active Substance: CYCLOPHOSPHAMIDE
     Route: 065
     Dates: start: 20160921, end: 20160923
  16. DECADRON [Suspect]
     Active Substance: DEXAMETHASONE
     Indication: METASTASES TO CENTRAL NERVOUS SYSTEM
  17. AUGMENTIN [Concomitant]
     Active Substance: AMOXICILLIN\CLAVULANATE POTASSIUM
     Indication: PRODUCT USED FOR UNKNOWN INDICATION
     Route: 065
  18. ZITHROMAX [Concomitant]
     Active Substance: AZITHROMYCIN DIHYDRATE
     Indication: PRODUCT USED FOR UNKNOWN INDICATION
     Route: 065
  19. METHOTREXATE. [Suspect]
     Active Substance: METHOTREXATE
     Indication: BONE MARROW CONDITIONING REGIMEN
     Route: 030
     Dates: end: 20141205
  20. DOXORUBICIN [Suspect]
     Active Substance: DOXORUBICIN
     Indication: B PRECURSOR TYPE ACUTE LEUKAEMIA
     Dosage: INTENSIFICATION 2
     Route: 065
  21. 6-MP [Suspect]
     Active Substance: MERCAPTOPURINE
     Route: 065
     Dates: end: 20141205
  22. MITOXANTRONE [Suspect]
     Active Substance: MITOXANTRONE HYDROCHLORIDE
     Indication: B PRECURSOR TYPE ACUTE LEUKAEMIA
     Dosage: SALVAGE CHEMOTHERAPY WITH ALL-R3 REGIMEN
     Route: 065
  23. SOLU-CORTEF [Suspect]
     Active Substance: HYDROCORTISONE SODIUM SUCCINATE
     Indication: ADVERSE EVENT
     Route: 037
     Dates: end: 20170622
  24. VFEND [Suspect]
     Active Substance: VORICONAZOLE
     Indication: PRODUCT USED FOR UNKNOWN INDICATION
     Route: 065
  25. 6-MP [Suspect]
     Active Substance: MERCAPTOPURINE
     Indication: B PRECURSOR TYPE ACUTE LEUKAEMIA
     Dosage: INTENSIFICATION 2
     Route: 065
  26. HYDROCORTISONE. [Suspect]
     Active Substance: HYDROCORTISONE
     Route: 037
     Dates: start: 20160708
  27. METHOTREXATE. [Suspect]
     Active Substance: METHOTREXATE
     Indication: METASTASES TO CENTRAL NERVOUS SYSTEM
     Route: 037
  28. PEG/L-ASPARAGINASE [Suspect]
     Active Substance: PEGASPARGASE
     Indication: B PRECURSOR TYPE ACUTE LEUKAEMIA
     Dosage: INTENSIFICATION 2
     Route: 065
  29. BLINCYTO [Suspect]
     Active Substance: BLINATUMOMAB
     Route: 065
     Dates: start: 20170524, end: 20170621
  30. HYDROCORTISONE. [Suspect]
     Active Substance: HYDROCORTISONE
     Indication: METASTASES TO CENTRAL NERVOUS SYSTEM
     Dosage: DOSE INCREASED FROM 50MG TO 100MG
     Route: 065
  31. SOLU-MEDROL [Suspect]
     Active Substance: METHYLPREDNISOLONE SODIUM SUCCINATE
     Indication: ADVERSE EVENT
     Route: 065
     Dates: start: 20160502
  32. CYCLOPHOSPHAMIDE FOR INJECTION, USP [Suspect]
     Active Substance: CYCLOPHOSPHAMIDE
     Indication: BONE MARROW CONDITIONING REGIMEN
     Dosage: CONDITIONING REGIMEN
     Route: 065
     Dates: start: 20151016
  33. METHOTREXATE. [Suspect]
     Active Substance: METHOTREXATE
     Indication: B PRECURSOR TYPE ACUTE LEUKAEMIA
     Dosage: HIGH DOSE
     Route: 065
  34. ARA-C [Suspect]
     Active Substance: CYTARABINE
     Indication: ADVERSE EVENT
     Route: 037
     Dates: start: 20160708
  35. HYDROCORTISONE. [Suspect]
     Active Substance: HYDROCORTISONE
     Indication: RECURRENT CANCER
     Route: 065
  36. PROMETHAZINE [Concomitant]
     Active Substance: PROMETHAZINE\PROMETHAZINE HYDROCHLORIDE
     Indication: PRODUCT USED FOR UNKNOWN INDICATION
     Route: 065

REACTIONS (18)
  - Bone marrow failure [Unknown]
  - Paraesthesia [Unknown]
  - Pyrexia [Unknown]
  - Dizziness [Recovered/Resolved]
  - Headache [Recovered/Resolved]
  - Febrile neutropenia [Unknown]
  - Visual impairment [Unknown]
  - Recurrent cancer [Unknown]
  - Drug eruption [Unknown]
  - Tinnitus [Recovered/Resolved]
  - Hypoaesthesia [Unknown]
  - Cholelithiasis [Recovering/Resolving]
  - Acute lymphocytic leukaemia recurrent [Unknown]
  - Metastases to central nervous system [Unknown]
  - Pyrexia [Recovered/Resolved]
  - Malignant neoplasm progression [Unknown]
  - Pyrexia [Recovered/Resolved]
  - Back pain [Recovered/Resolved]

NARRATIVE: CASE EVENT DATE: 20151203
